FAERS Safety Report 5994050-1 (Version None)
Quarter: 2008Q4

REPORT INFORMATION
  Report Type: 
  Country: None (occurrence: None)
  Receive Date: 20081212
  Receipt Date: 20081001
  Transmission Date: 20090506
  Serious: No
  Sender: FDA-Public Use
  Company Number: US-ABBOTT-08P-163-0472943-00

PATIENT
  Sex: Female

DRUGS (1)
  1. HUMIRA [Suspect]
     Indication: PSORIATIC ARTHROPATHY
     Dates: start: 20051202

REACTIONS (6)
  - BLISTER [None]
  - FALL [None]
  - MUSCULOSKELETAL PAIN [None]
  - SEBORRHOEIC KERATOSIS [None]
  - SKIN HAEMORRHAGE [None]
  - TOOTH INJURY [None]
